FAERS Safety Report 14111903 (Version 5)
Quarter: 2018Q1

REPORT INFORMATION
  Report Type: Report from Study
  Country: CA (occurrence: CA)
  Receive Date: 20171020
  Receipt Date: 20180104
  Transmission Date: 20180508
  Serious: Yes (Hospitalization, Other)
  Sender: FDA-Public Use
  Company Number: CA-TAKEDA-2017TUS019922

PATIENT
  Age: 70 Year
  Sex: Male

DRUGS (3)
  1. DANAZOL. [Concomitant]
     Active Substance: DANAZOL
     Dosage: UNK
  2. MEZAVANT [Concomitant]
     Active Substance: MESALAMINE
     Dosage: UNK
  3. VEDOLIZUMAB [Suspect]
     Active Substance: VEDOLIZUMAB
     Indication: CROHN^S DISEASE
     Dosage: 300 MG, UNK
     Route: 042
     Dates: start: 20170811, end: 20171107

REACTIONS (4)
  - Skin ulcer [Recovering/Resolving]
  - Anaphylactic reaction [Recovering/Resolving]
  - Cellulitis [Recovering/Resolving]
  - Crohn^s disease [Not Recovered/Not Resolved]

NARRATIVE: CASE EVENT DATE: 2017
